FAERS Safety Report 15638154 (Version 1)
Quarter: 2018Q4

REPORT INFORMATION
  Report Type: Report from Study
  Country: HK (occurrence: HK)
  Receive Date: 20181120
  Receipt Date: 20181120
  Transmission Date: 20190205
  Serious: Yes (Hospitalization)
  Sender: FDA-Public Use
  Company Number: HK-PFIZER INC-2018470985

PATIENT
  Age: 59 Year
  Sex: Male
  Weight: 62.2 kg

DRUGS (15)
  1. IRINOTECAN HCL [Suspect]
     Active Substance: IRINOTECAN HYDROCHLORIDE
     Dosage: 600 MG, TOTAL DAILY DOSE, CYCLE 3
     Route: 041
     Dates: start: 20181018
  2. KYTRIL [Concomitant]
     Active Substance: GRANISETRON HYDROCHLORIDE
     Dosage: UNK
     Dates: start: 20181018, end: 20181018
  3. FLUIMUCIL A [Concomitant]
     Dosage: UNK
     Dates: start: 20181016
  4. LORATADINE. [Concomitant]
     Active Substance: LORATADINE
     Dosage: UNK
     Dates: start: 20181015, end: 20181021
  5. PANADOL [Concomitant]
     Active Substance: ACETAMINOPHEN
     Dosage: UNK
     Dates: start: 20180821, end: 20181001
  6. ZOFRAN [ONDANSETRON] [Concomitant]
     Dosage: UNK
     Dates: start: 20180926, end: 20181020
  7. PANTOLOC [PANTOPRAZOLE SODIUM SESQUIHYDRATE] [Concomitant]
     Dosage: UNK
     Dates: start: 20161017
  8. GASTEEL [DIMETICONE] [Concomitant]
     Dosage: UNK
     Dates: start: 20121116
  9. IRINOTECAN HCL [Suspect]
     Active Substance: IRINOTECAN HYDROCHLORIDE
     Indication: SMALL CELL LUNG CANCER
     Dosage: CYCLE 1
     Route: 041
     Dates: start: 20180905
  10. IRINOTECAN HCL [Suspect]
     Active Substance: IRINOTECAN HYDROCHLORIDE
     Dosage: UNK
     Route: 041
  11. IMODIUM [Concomitant]
     Active Substance: LOPERAMIDE HYDROCHLORIDE
     Dosage: UNK
     Dates: start: 20181016
  12. ATROPINE SULFATE. [Concomitant]
     Active Substance: ATROPINE SULFATE
     Dosage: UNK
     Dates: start: 20181018, end: 20181018
  13. TEVA GABAPENTIN [Concomitant]
     Active Substance: GABAPENTIN
     Dosage: UNK
     Dates: start: 20180905, end: 20181001
  14. ACTIFED COMPOUND [Concomitant]
     Dosage: UNK
     Dates: start: 20181015, end: 20181021
  15. ALLOPURINOL. [Concomitant]
     Active Substance: ALLOPURINOL
     Dosage: UNK
     Dates: start: 20180307

REACTIONS (2)
  - Pyrexia [Recovered/Resolved]
  - Urticaria [Recovered/Resolved]

NARRATIVE: CASE EVENT DATE: 20181030
